FAERS Safety Report 5897022-0 (Version None)
Quarter: 2008Q3

REPORT INFORMATION
  Report Type: 
  Country: None (occurrence: None)
  Receive Date: 20080924
  Receipt Date: 20080305
  Transmission Date: 20090109
  Serious: Yes (Other)
  Sender: FDA-Public Use
  Company Number: US-ASTRAZENECA-2008UW04510

PATIENT
  Sex: Female

DRUGS (5)
  1. SEROQUEL [Suspect]
     Indication: BIPOLAR DISORDER
     Route: 048
  2. SEROQUEL [Suspect]
     Route: 048
  3. ARICEPT [Concomitant]
  4. NAMENDA [Concomitant]
  5. DEPAKOTE [Concomitant]

REACTIONS (2)
  - CONFUSIONAL STATE [None]
  - LETHARGY [None]
